FAERS Safety Report 12330436 (Version 1)
Quarter: 2016Q2

REPORT INFORMATION
  Report Type: Spontaneous
  Country: US (occurrence: None)
  Receive Date: 20160503
  Receipt Date: 20160503
  Transmission Date: 20160815
  Serious: No
  Sender: FDA-Public Use
  Company Number: None

PATIENT
  Age: 61 Year
  Sex: Female

DRUGS (6)
  1. TOPARIMINE [Concomitant]
  2. TUBERCULIN PURIFIED PROTEIN DERIVATIVE (MANTOUX) [Suspect]
     Active Substance: TUBERCULIN PURIFIED PROTEIN DERIVATIVE (MANTOUX)
     Dosage: RIGHT FOREARM?9:30AM?EVENING
     Dates: start: 20160321, end: 20160321
  3. IBUPROFEN. [Concomitant]
     Active Substance: IBUPROFEN
  4. TENVATE [Concomitant]
  5. ACETAMINOPHEN\HYDROCODONE BITARTRATE [Concomitant]
     Active Substance: ACETAMINOPHEN\HYDROCODONE BITARTRATE
  6. HCTZ [Concomitant]
     Active Substance: HYDROCHLOROTHIAZIDE

REACTIONS (5)
  - Sensory disturbance [None]
  - Urticaria [None]
  - Pruritus [None]
  - Unevaluable event [None]
  - Injection site erythema [None]

NARRATIVE: CASE EVENT DATE: 20160321
